FAERS Safety Report 7300942-3 (Version None)
Quarter: 2011Q1

REPORT INFORMATION
  Report Type: 
  Country: None (occurrence: None)
  Receive Date: 20110106
  Receipt Date: 20100716
  Transmission Date: 20110831
  Serious: Yes (Hospitalization)
  Sender: FDA-Public Use
  Company Number: AMI0023152

PATIENT
  Age: 57 Year
  Sex: Female

DRUGS (4)
  1. TAFLUPROST [Suspect]
     Indication: GLAUCOMA
     Dosage: QD-046
     Dates: start: 20100421, end: 20100714
  2. TAFLUPROST [Suspect]
     Indication: OCULAR HYPERTENSION
     Dosage: QD-046
     Dates: start: 20100421, end: 20100714
  3. TIMOPTIC [Suspect]
     Indication: OCULAR HYPERTENSION
     Dosage: BID-046
     Dates: start: 20100421, end: 20100714
  4. TIMOPTIC [Suspect]
     Indication: GLAUCOMA
     Dosage: BID-046
     Dates: start: 20100421, end: 20100714

REACTIONS (4)
  - HYPOKALAEMIA [None]
  - URINARY TRACT INFECTION [None]
  - DEHYDRATION [None]
  - COLITIS [None]
